FAERS Safety Report 26116731 (Version 2)
Quarter: 2025Q4

REPORT INFORMATION
  Report Type: Spontaneous
  Country: EU (occurrence: EU)
  Receive Date: 20251203
  Receipt Date: 20251224
  Transmission Date: 20260119
  Serious: Yes (Death, Other)
  Sender: TEVA
  Company Number: EU-TEVA-VS-3398166

PATIENT
  Age: 84 Year
  Sex: Female

DRUGS (5)
  1. VINCRISTINE [Suspect]
     Active Substance: VINCRISTINE
     Indication: Intestinal T-cell lymphoma recurrent
     Route: 065
  2. PROCARBAZINE [Suspect]
     Active Substance: PROCARBAZINE
     Indication: Intestinal T-cell lymphoma recurrent
     Route: 065
  3. TEMOZOLOMIDE [Concomitant]
     Active Substance: TEMOZOLOMIDE
     Indication: Intestinal T-cell lymphoma recurrent
     Route: 048
  4. METHOTREXATE [Suspect]
     Active Substance: METHOTREXATE
     Indication: Intestinal T-cell lymphoma recurrent
     Dosage: HIGH DOSE 3 G/M2 RECEIVED ON DAY 1 AND DAY 15
     Route: 042
  5. METHOTREXATE [Suspect]
     Active Substance: METHOTREXATE
     Indication: Intestinal T-cell lymphoma recurrent
     Dosage: ROUTE OF ADMINISTRATION: INTRAVITREAL
     Route: 065

REACTIONS (4)
  - Drug ineffective [Fatal]
  - Eye pain [Unknown]
  - Corneal toxicity [Unknown]
  - Erythema [Unknown]
